FAERS Safety Report 6941974-4 (Version None)
Quarter: 2010Q3

REPORT INFORMATION
  Report Type: 
  Country: None (occurrence: None)
  Receive Date: 20100826
  Receipt Date: 20100812
  Transmission Date: 20110219
  Serious: Yes (Other)
  Sender: FDA-Public Use
  Company Number: PHHY2010US54057

PATIENT
  Age: 65 Year
  Sex: Female

DRUGS (2)
  1. RECLAST [Suspect]
     Indication: OSTEOPOROSIS
     Dosage: 5 MG, ONCE PER YEAR
     Route: 042
     Dates: start: 20100101
  2. ANTIRHEUMATIC (INCL.ANTIPHLOGISTICS) [Concomitant]

REACTIONS (1)
  - OSTEONECROSIS OF JAW [None]
